FAERS Safety Report 10022325 (Version 1)
Quarter: 2014Q1

REPORT INFORMATION
  Report Type: Spontaneous
  Country: US (occurrence: None)
  Receive Date: 20140318
  Receipt Date: 20140318
  Transmission Date: 20141002
  Serious: Yes (Other)
  Sender: FDA-Public Use
  Company Number: None

PATIENT
  Age: 72 None
  Sex: Female
  Weight: 69.85 kg

DRUGS (1)
  1. NORVASC [Suspect]
     Indication: HYPERTENSION
     Dosage: DAY
     Dates: start: 201211, end: 201304

REACTIONS (2)
  - Joint swelling [None]
  - Somnolence [None]
